FAERS Safety Report 8823398 (Version 1)
Quarter: 2012Q4

REPORT INFORMATION
  Report Type: 
  Country: US (occurrence: US)
  Receive Date: 20121003
  Receipt Date: 20121003
  Transmission Date: 20130627
  Serious: No
  Sender: FDA-Public Use
  Company Number: US-009507513-1210USA000461

PATIENT

DRUGS (3)
  1. PEGASYS [Suspect]
  2. VICTRELIS [Suspect]
     Dosage: 800 mg, tid
  3. REBETOL [Suspect]

REACTIONS (1)
  - Platelet count decreased [Unknown]
